FAERS Safety Report 20391566 (Version 3)
Quarter: 2022Q1

REPORT INFORMATION
  Report Type: Report from Study
  Country: US (occurrence: None)
  Receive Date: 20220128
  Receipt Date: 20220322
  Transmission Date: 20220423
  Serious: Yes (Death, Other)
  Sender: FDA-Public Use
  Company Number: 2022A044450

PATIENT
  Age: 24681 Day

DRUGS (1)
  1. SYMBICORT [Suspect]
     Active Substance: BUDESONIDE\FORMOTEROL FUMARATE DIHYDRATE
     Dosage: DOSE AND FREQUENCY UNKNOWN UNKNOWN
     Route: 055

REACTIONS (4)
  - Death [Fatal]
  - Neoplasm malignant [Unknown]
  - Renal failure [Unknown]
  - COVID-19 [Unknown]

NARRATIVE: CASE EVENT DATE: 20220122
